FAERS Safety Report 4807624-8 (Version None)
Quarter: 2005Q4

REPORT INFORMATION
  Report Type: 
  Country: None (occurrence: None)
  Receive Date: 20051020
  Receipt Date: 20051011
  Transmission Date: 20060501
  Serious: Yes (Other)
  Sender: FDA-Public Use
  Company Number: 234828K05USA

PATIENT
  Age: 49 Year
  Sex: Male

DRUGS (3)
  1. REBIF [Suspect]
     Indication: MULTIPLE SCLEROSIS
     Dosage: 44 MCG, 3 IN 1 WEEKS, SUBCUTANEOUS
     Route: 058
     Dates: start: 20050830
  2. TYLENOL ARTHRITIS (PARACETAMOL) [Concomitant]
  3. ALEVE [Concomitant]

REACTIONS (5)
  - FEELING ABNORMAL [None]
  - INJECTION SITE IRRITATION [None]
  - LETHARGY [None]
  - PROSTATE CANCER [None]
  - WEIGHT DECREASED [None]
